FAERS Safety Report 6725238-X (Version None)
Quarter: 2010Q2

REPORT INFORMATION
  Report Type: 
  Country: None (occurrence: None)
  Receive Date: 20100514
  Receipt Date: 20100510
  Transmission Date: 20101027
  Serious: Yes (Other)
  Sender: FDA-Public Use
  Company Number: US-BAYER-201015292BCC

PATIENT
  Age: 20 Year
  Sex: Female
  Weight: 77 kg

DRUGS (1)
  1. ALEVE (CAPLET) [Suspect]
     Indication: SELF-INJURIOUS IDEATION
     Route: 048
     Dates: start: 20100510

REACTIONS (2)
  - FATIGUE [None]
  - SOMNOLENCE [None]
